FAERS Safety Report 7967381-3 (Version None)
Quarter: 2011Q4

REPORT INFORMATION
  Report Type: 
  Country: None (occurrence: None)
  Receive Date: 20111206
  Receipt Date: 20111122
  Transmission Date: 20120403
  Serious: Yes (Other)
  Sender: FDA-Public Use
  Company Number: TPA2011A07893

PATIENT
  Age: 63 Year
  Sex: Female
  Weight: 136.0791 kg

DRUGS (8)
  1. METFORMIN HCL [Concomitant]
  2. ENALAPRIL MALEATE [Concomitant]
  3. POTASSIUM CHLORIDE [Concomitant]
  4. ACTOS [Suspect]
     Dates: end: 20110801
  5. BYETTA [Suspect]
     Indication: TYPE 2 DIABETES MELLITUS
     Dosage: 5 MCG, 2 IN 1 D, SUBCUTANEOUS ; 10 MCG, 2 IN 1 D, SUBCUTANEOUS
     Route: 058
     Dates: start: 20111001
  6. GLYBURIDE [Concomitant]
  7. OMEPRAZOLE [Concomitant]
  8. FUROSEMIDE [Concomitant]

REACTIONS (6)
  - BLOOD GLUCOSE DECREASED [None]
  - ERUCTATION [None]
  - BLOOD GLUCOSE INCREASED [None]
  - PAIN [None]
  - RENAL CANCER [None]
  - GLYCOSYLATED HAEMOGLOBIN INCREASED [None]
